FAERS Safety Report 13796194 (Version 1)
Quarter: 2017Q3

REPORT INFORMATION
  Report Type: Spontaneous
  Country: DK (occurrence: DK)
  Receive Date: 20170726
  Receipt Date: 20170726
  Transmission Date: 20171127
  Serious: Yes (Life-Threatening, Hospitalization)
  Sender: FDA-Public Use
  Company Number: PHHY2017DK106841

PATIENT
  Age: 16 Year
  Sex: Female
  Weight: 44 kg

DRUGS (7)
  1. IPREN [Concomitant]
     Active Substance: IBUPROFEN
     Indication: PYREXIA
     Dosage: UNK
     Route: 065
     Dates: start: 20160226
  2. KEPPRA [Concomitant]
     Active Substance: LEVETIRACETAM
     Indication: EPILEPSY
     Dosage: UNK
     Route: 065
     Dates: start: 20150915, end: 20170706
  3. TAFINLAR [Suspect]
     Active Substance: DABRAFENIB MESYLATE
     Indication: MALIGNANT GLIOMA
     Dosage: 75 MG, BID
     Route: 048
     Dates: start: 20160226, end: 20170612
  4. MEKINIST [Suspect]
     Active Substance: TRAMETINIB DIMETHYL SULFOXIDE
     Indication: MALIGNANT GLIOMA
     Dosage: 1 MG, QD
     Route: 048
     Dates: start: 20160226, end: 20170612
  5. FRISIUM [Concomitant]
     Active Substance: CLOBAZAM
     Indication: EPILEPSY
     Dosage: UNK
     Route: 048
     Dates: start: 20170307, end: 20170706
  6. PANODIL [Concomitant]
     Active Substance: ACETAMINOPHEN
     Indication: PYREXIA
     Dosage: UNK
     Route: 065
     Dates: start: 20160226
  7. BIOCLAVID [Concomitant]
     Active Substance: AMOXICILLIN\CLAVULANIC ACID
     Indication: INFECTION
     Dosage: STRENGTH (500 + 125 MG)
     Route: 048
     Dates: start: 20170609, end: 20170614

REACTIONS (3)
  - Haemolytic uraemic syndrome [Recovering/Resolving]
  - Renal failure [Recovering/Resolving]
  - Vomiting [Recovering/Resolving]

NARRATIVE: CASE EVENT DATE: 20170612
